FAERS Safety Report 18014652 (Version 2)
Quarter: 2021Q2

REPORT INFORMATION
  Report Type: Spontaneous
  Country: CA (occurrence: CA)
  Receive Date: 20200713
  Receipt Date: 20210628
  Transmission Date: 20210717
  Serious: Yes (Death)
  Sender: FDA-Public Use
  Company Number: CA-TEVA-2020-CA-1798813

PATIENT
  Age: 71 Year
  Sex: Male

DRUGS (17)
  1. BUPROPION SR [Suspect]
     Active Substance: BUPROPION HYDROCHLORIDE
     Indication: SCHIZOPHRENIA
     Route: 048
  2. ZOPICLONE [Concomitant]
     Active Substance: ZOPICLONE
  3. ATORVASTATIN [Concomitant]
     Active Substance: ATORVASTATIN
  4. BUPROPION SR [Suspect]
     Active Substance: BUPROPION HYDROCHLORIDE
     Route: 048
  5. ESCITALOPRAM [Suspect]
     Active Substance: ESCITALOPRAM OXALATE
     Indication: SCHIZOPHRENIA
     Route: 048
  6. TAMSULOSIN [Concomitant]
     Active Substance: TAMSULOSIN
  7. ARIPIPRAZOLE. [Suspect]
     Active Substance: ARIPIPRAZOLE
     Indication: SCHIZOPHRENIA
     Route: 048
  8. METFORMIN [Concomitant]
     Active Substance: METFORMIN HYDROCHLORIDE
  9. DUTASTERIDE. [Concomitant]
     Active Substance: DUTASTERIDE
  10. FUROSEMIDE. [Concomitant]
     Active Substance: FUROSEMIDE
  11. RABEPRAZOLE [Concomitant]
     Active Substance: RABEPRAZOLE
  12. VITAMIN B12 [Concomitant]
     Active Substance: CYANOCOBALAMIN
  13. QUETIAPINE FUMARATE XR 200MG [Suspect]
     Active Substance: QUETIAPINE FUMARATE
     Indication: SCHIZOPHRENIA
     Route: 048
  14. FERAMAX [Concomitant]
     Active Substance: IRON\POLYSACCHARIDES
  15. IPRATROPIUM [Concomitant]
     Active Substance: IPRATROPIUM
  16. POTASSIUM CHLORIDE. [Concomitant]
     Active Substance: POTASSIUM CHLORIDE
  17. QUETIAPINE XR [Concomitant]
     Active Substance: QUETIAPINE

REACTIONS (13)
  - Blood creatine phosphokinase increased [Fatal]
  - Hepatic function abnormal [Fatal]
  - Hyperreflexia [Fatal]
  - Cardiac failure [Fatal]
  - Neuroleptic malignant syndrome [Fatal]
  - Renal impairment [Fatal]
  - Cardiomyopathy [Fatal]
  - Muscle rigidity [Fatal]
  - Autonomic nervous system imbalance [Fatal]
  - Hyperthermia [Fatal]
  - Cardiogenic shock [Fatal]
  - Myoclonus [Fatal]
  - Tachycardia [Fatal]
